FAERS Safety Report 4357645-7 (Version None)
Quarter: 2004Q2

REPORT INFORMATION
  Report Type: 
  Country: None (occurrence: None)
  Receive Date: 20040513
  Receipt Date: 20031106
  Transmission Date: 20050107
  Serious: Yes (Death, Hospitalization, Other)
  Sender: FDA-Public Use
  Company Number: GB-MERCK-0311GBR00065

PATIENT
  Age: 68 Year
  Sex: Male

DRUGS (6)
  1. [THERAPY UNSPECIFIED] [Concomitant]
     Indication: CONSTIPATION
     Route: 065
  2. [THERAPY UNSPECIFIED] [Suspect]
     Route: 065
     Dates: end: 20030501
  3. ZOCOR [Suspect]
     Route: 048
     Dates: start: 20010401, end: 20030501
  4. ZOCOR [Suspect]
     Route: 048
     Dates: start: 20030501, end: 20030801
  5. ZOCOR [Suspect]
     Route: 048
     Dates: start: 20030801, end: 20030101
  6. TRAZODONE HYDROCHLORIDE [Concomitant]
     Indication: DEPRESSION
     Route: 065

REACTIONS (7)
  - BLOOD CREATINE PHOSPHOKINASE INCREASED [None]
  - DEMENTIA [None]
  - EXTRAPYRAMIDAL DISORDER [None]
  - LIVER ABSCESS [None]
  - LIVER FUNCTION TEST ABNORMAL [None]
  - MYOCARDIAL INFARCTION [None]
  - NEUROLEPTIC MALIGNANT SYNDROME [None]
